FAERS Safety Report 6967227-6 (Version None)
Quarter: 2010Q3

REPORT INFORMATION
  Report Type: 
  Country: None (occurrence: None)
  Receive Date: 20100907
  Receipt Date: 20100824
  Transmission Date: 20110219
  Serious: Yes (Hospitalization)
  Sender: FDA-Public Use
  Company Number: FR-ELI_LILLY_AND_COMPANY-FR201006006516

PATIENT
  Sex: Male
  Weight: 71.5 kg

DRUGS (5)
  1. FORTEO [Suspect]
     Indication: OSTEOPOROSIS
     Dosage: 20 UG, DAILY (1/D)
     Route: 058
     Dates: start: 20090617
  2. NOVATREX /00113801/ [Concomitant]
     Indication: ANKYLOSING SPONDYLITIS
     Dosage: 2.5 D/F, 6 TIMES WEEKLY
     Route: 048
  3. SPECIAFOLDINE [Concomitant]
     Indication: ANKYLOSING SPONDYLITIS
     Dosage: 5 MG, DAILY (1/D)
     Route: 048
  4. BI PROFENID [Concomitant]
     Indication: ANKYLOSING SPONDYLITIS
     Dosage: 150 MG, 2/D
     Route: 048
  5. INIPOMP [Concomitant]
     Indication: ANKYLOSING SPONDYLITIS
     Dosage: 1 D/F, DAILY (1/D)
     Route: 048

REACTIONS (2)
  - HYDROCELE [None]
  - INGUINAL HERNIA [None]
